FAERS Safety Report 25732692 (Version 2)
Quarter: 2025Q3

REPORT INFORMATION
  Report Type: Report from Study
  Country: CN (occurrence: CN)
  Receive Date: 20250827
  Receipt Date: 20250901
  Transmission Date: 20251021
  Serious: Yes (Death)
  Sender: BEIGENE
  Company Number: CN-ROCHE-10000290652

PATIENT
  Weight: 71 kg

DRUGS (27)
  1. BRUKINSA [Suspect]
     Active Substance: ZANUBRUTINIB
     Indication: Diffuse large B-cell lymphoma
     Dosage: 160 MG, 2 IN 1 DAY
  2. POLATUZUMAB VEDOTIN [Suspect]
     Active Substance: POLATUZUMAB VEDOTIN
     Indication: Diffuse large B-cell lymphoma
     Dosage: 120 MG, 1 IN 1 DAY
  3. LENALIDOMIDE [Suspect]
     Active Substance: LENALIDOMIDE
     Indication: Diffuse large B-cell lymphoma
     Dosage: 25 MG, 1 IN 1 DAY
  4. RITUXIMAB [Suspect]
     Active Substance: RITUXIMAB
     Indication: Diffuse large B-cell lymphoma
     Dosage: 600 MG, 1 IN 1 DAY
  5. CEFTAZIDIME [Concomitant]
     Active Substance: CEFTAZIDIME
     Dosage: 2 G, 2 IN 1 DAY
  6. AMBROXOL HYDROCHLORIDE [Concomitant]
     Active Substance: AMBROXOL HYDROCHLORIDE
     Dosage: 30 MG, 2 IN 1 DAY
  7. ACETYLCYSTEINE [Concomitant]
     Active Substance: ACETYLCYSTEINE
     Dosage: 0.3 G, 2 IN 1 DAY
  8. LINEZOLID [Concomitant]
     Active Substance: LINEZOLID
     Dosage: 600 MG, 2 IN 1 DAY
  9. ENTECAVIR [Concomitant]
     Active Substance: ENTECAVIR
     Dosage: 0.5 MG, 1 IN 1 DAY
  10. IMIPENEM AND CILASTATIN SODIUM [Concomitant]
     Active Substance: CILASTATIN SODIUM\IMIPENEM
     Dosage: 500 MG, 1 IN 6 HOUR
  11. PROMETHAZINE [Concomitant]
     Active Substance: PROMETHAZINE HYDROCHLORIDE
     Dosage: 25 MG, 1 IN 1 DAY
  12. PROMETHAZINE [Concomitant]
     Active Substance: PROMETHAZINE HYDROCHLORIDE
     Dosage: 25 MG, 1 IN 1 DAY
  13. POTASSIUM CHLORIDE [Concomitant]
     Active Substance: POTASSIUM CHLORIDE
     Dosage: 0.5 G, 3 IN 1 DAY
  14. CEFACLOR [Concomitant]
     Active Substance: CEFACLOR
     Dosage: 375 MILLIGRAM, BID
  15. LEUCOGEN [Concomitant]
     Active Substance: LEUCOGEN
     Dosage: 20 MG, 3 IN 1 DAY
  16. OMEPRAZOLE [Concomitant]
     Active Substance: OMEPRAZOLE
     Dosage: 40 MG, 1 IN 1 DAY
  17. ONDANSETRON HYDROCHLORIDE [Concomitant]
     Active Substance: ONDANSETRON HYDROCHLORIDE
  18. METHYLPREDNISOLONE SODIUM SUCCINATE [Concomitant]
     Active Substance: METHYLPREDNISOLONE SODIUM SUCCINATE
     Dosage: 40 MG, 1 IN 1 DAY
  19. OMEPRAZOLE SODIUM [Concomitant]
     Active Substance: OMEPRAZOLE SODIUM
     Dosage: 40 MG, 1 IN 1 DAY
  20. FLUCONAZOLE [Concomitant]
     Active Substance: FLUCONAZOLE
  21. ALBUMIN HUMAN [Concomitant]
     Active Substance: ALBUMIN HUMAN
     Dosage: 10 MILLIGRAM, QD
  22. SODIUM BICARBONATE [Concomitant]
     Active Substance: SODIUM BICARBONATE
     Route: 050
  23. ACYCLOVIR [Concomitant]
     Active Substance: ACYCLOVIR
     Dosage: 0.4 G, 2 IN 1 DAY
  24. SULFADIAZINE\SULFAMETHOXAZOLE\TRIMETHOPRIM [Concomitant]
     Active Substance: SULFADIAZINE\SULFAMETHOXAZOLE\TRIMETHOPRIM
     Dosage: 0.4 G, 1 IN 1 DAY
  25. PREDNISONE ACETATE [Concomitant]
     Active Substance: PREDNISONE ACETATE
     Dosage: 15 MG, 1 IN 1 DAY
  26. ACETAMINOPHEN [Concomitant]
     Active Substance: ACETAMINOPHEN
     Dosage: 450 MG, 1 IN 1 DAY
  27. GLYCERIN [Concomitant]
     Active Substance: GLYCERIN

REACTIONS (2)
  - Death [Fatal]
  - Off label use [Unknown]
